FAERS Safety Report 8029143-0 (Version None)
Quarter: 2012Q1

REPORT INFORMATION
  Report Type: 
  Country: None (occurrence: None)
  Receive Date: 20120106
  Receipt Date: 20111228
  Transmission Date: 20120608
  Serious: Yes (Hospitalization)
  Sender: FDA-Public Use
  Company Number: PHHY2011DE113174

PATIENT
  Sex: Female

DRUGS (12)
  1. ZOLEDRONIC [Suspect]
     Indication: OSTEOPOROSIS
     Dosage: 5 MG, UNK
     Route: 065
     Dates: start: 20100531
  2. DEKRISTOL [Concomitant]
     Route: 065
  3. ALBUTEROL SULFATE [Concomitant]
     Route: 065
  4. DILTIAZEM HCL [Concomitant]
     Route: 065
  5. SPIRIVA [Concomitant]
     Route: 065
  6. MIRTAZAPINE [Concomitant]
     Route: 065
  7. OXAZEPAM [Concomitant]
     Route: 065
  8. NEURO-RATIOPHARM N FILMTABLETTEN [Concomitant]
     Route: 065
  9. CINACALCET HYDROCHLORIDE [Suspect]
     Indication: HYPERPARATHYROIDISM
     Route: 065
  10. INDACATEROL [Concomitant]
     Route: 065
  11. FOLIC ACID [Concomitant]
     Route: 065
  12. CORTISONE ACETATE [Concomitant]
     Route: 065

REACTIONS (6)
  - TACHYCARDIA [None]
  - ASTHENIA [None]
  - SINUS TACHYCARDIA [None]
  - VERTIGO [None]
  - MUSCULAR WEAKNESS [None]
  - ANXIETY [None]
